FAERS Safety Report 4940930-5 (Version None)
Quarter: 2006Q1

REPORT INFORMATION
  Report Type: 
  Country: None (occurrence: None)
  Receive Date: 20060313
  Receipt Date: 20060303
  Transmission Date: 20060701
  Serious: Yes (Hospitalization, Other)
  Sender: FDA-Public Use
  Company Number: US-JNJFOC-20060301291

PATIENT

DRUGS (1)
  1. TRAMADOL HCL [Suspect]

REACTIONS (5)
  - MUSCLE RIGIDITY [None]
  - MUSCLE SPASMS [None]
  - MYOCLONUS [None]
  - TARDIVE DYSKINESIA [None]
  - TREMOR [None]
